FAERS Safety Report 25056090 (Version 1)
Quarter: 2025Q1

REPORT INFORMATION
  Report Type: Spontaneous
  Country: FR (occurrence: FR)
  Receive Date: 20250309
  Receipt Date: 20250309
  Transmission Date: 20250409
  Serious: Yes (Congenital Anomaly)
  Sender: ORGANON
  Company Number: None

PATIENT
  Age: 30 Year
  Sex: Female

DRUGS (1)
  1. MAXALT [Suspect]
     Active Substance: RIZATRIPTAN BENZOATE
     Route: 048
     Dates: start: 20121011

REACTIONS (4)
  - Limb reduction defect [Not Recovered/Not Resolved]
  - Congenital pyelocaliectasis [Not Recovered/Not Resolved]
  - Congenital central nervous system anomaly [Not Recovered/Not Resolved]
  - Dilatation ventricular [Not Recovered/Not Resolved]
